FAERS Safety Report 6538951-4 (Version None)
Quarter: 2010Q1

REPORT INFORMATION
  Report Type: 
  Country: None (occurrence: None)
  Receive Date: 20100115
  Receipt Date: 20100108
  Transmission Date: 20100710
  Serious: No
  Sender: FDA-Public Use
  Company Number: BR-ROCHE-657225

PATIENT
  Sex: Female
  Weight: 2.6 kg

DRUGS (2)
  1. TAMIFLU [Suspect]
     Route: 064
     Dates: start: 20090906, end: 20090911
  2. CEPHALEXIN [Concomitant]
     Route: 064
     Dates: start: 20090907

REACTIONS (3)
  - AMNIORRHOEA [None]
  - NORMAL NEWBORN [None]
  - PREMATURE LABOUR [None]
